FAERS Safety Report 11594937 (Version 1)
Quarter: 2015Q4

REPORT INFORMATION
  Report Type: Spontaneous
  Country: US (occurrence: US)
  Receive Date: 20151005
  Receipt Date: 20151005
  Transmission Date: 20160304
  Serious: No
  Sender: FDA-Public Use
  Company Number: US-TOLMAR INC.-1042600

PATIENT
  Age: 67 Year
  Sex: Female
  Weight: 51.82 kg

DRUGS (8)
  1. ATENOLOL. [Concomitant]
     Active Substance: ATENOLOL
  2. SIMVASTATIN. [Concomitant]
     Active Substance: SIMVASTATIN
  3. ASPIRIN. [Concomitant]
     Active Substance: ASPIRIN
  4. VITAMIN D3DIETARY SUPPLEMEN DIETARY SUPPLEMENT [Concomitant]
     Active Substance: ALPHA-TOCOPHEROL\CHOLECALCIFEROL
  5. CICLOPIROX. [Suspect]
     Active Substance: CICLOPIROX
     Indication: FUNGAL INFECTION
     Route: 061
     Dates: start: 20141025
  6. OMEGA-3 ACIDS [Concomitant]
     Active Substance: OMEGA-3 FATTY ACIDS
  7. HYDROCHLOROTHIAZIDE. [Concomitant]
     Active Substance: HYDROCHLOROTHIAZIDE
  8. SYNTHROID [Concomitant]
     Active Substance: LEVOTHYROXINE SODIUM

REACTIONS (1)
  - Nail growth abnormal [Not Recovered/Not Resolved]

NARRATIVE: CASE EVENT DATE: 20141115
